FAERS Safety Report 8779980 (Version 1)
Quarter: 2012Q4

REPORT INFORMATION
  Report Type: 
  Country: US (occurrence: US)
  Receive Date: 20120912
  Receipt Date: 20120912
  Transmission Date: 20130627
  Serious: No
  Sender: FDA-Public Use
  Company Number: US-VERTEX PHARMACEUTICAL INC.-AE-2012-005890

PATIENT

DRUGS (8)
  1. INCIVEK [Suspect]
     Indication: HEPATITIS C
     Route: 048
     Dates: start: 20120413
  2. PEGASYS [Concomitant]
     Indication: HEPATITIS C
     Route: 058
     Dates: start: 20120413
  3. RIBAVIRIN [Concomitant]
     Indication: HEPATITIS C
     Route: 048
     Dates: start: 20120413
  4. FENTYL PATCH [Concomitant]
     Indication: PAIN
     Route: 061
  5. NORCO [Concomitant]
     Indication: PAIN
     Route: 048
  6. NADALOL [Concomitant]
     Indication: HYPERTENSION
     Route: 048
  7. SPIRONALACTONE [Concomitant]
     Route: 048
  8. MULTIVITAMIN [Concomitant]
     Indication: MEDICAL DIET
     Route: 048

REACTIONS (10)
  - Incorrect drug administration duration [Recovered/Resolved]
  - Chromaturia [Not Recovered/Not Resolved]
  - Mental impairment [Not Recovered/Not Resolved]
  - Dyspnoea [Not Recovered/Not Resolved]
  - Tremor [Not Recovered/Not Resolved]
  - Dehydration [Not Recovered/Not Resolved]
  - Sinusitis [Not Recovered/Not Resolved]
  - Cough [Not Recovered/Not Resolved]
  - Nausea [Not Recovered/Not Resolved]
  - Vomiting [Not Recovered/Not Resolved]
